FAERS Safety Report 25824326 (Version 1)
Quarter: 2025Q3

REPORT INFORMATION
  Report Type: Other
  Country: GB (occurrence: GB)
  Receive Date: 20250919
  Receipt Date: 20250919
  Transmission Date: 20251021
  Serious: Yes (Hospitalization, Other)
  Sender: Atnahs Healthcare
  Company Number: GB-AUROBINDO-AUR-APL-2025-045640

PATIENT

DRUGS (79)
  1. NAPROSYN [Suspect]
     Active Substance: NAPROXEN
     Indication: Hypermobility syndrome
     Route: 065
  2. NAPROSYN [Suspect]
     Active Substance: NAPROXEN
     Indication: Fibromyalgia
  3. NAPROSYN [Suspect]
     Active Substance: NAPROXEN
     Indication: Intervertebral disc degeneration
  4. NAPROSYN [Suspect]
     Active Substance: NAPROXEN
     Indication: Neuropathy peripheral
  5. NAPROSYN [Suspect]
     Active Substance: NAPROXEN
     Indication: Hemiplegic migraine
  6. NAPROSYN [Suspect]
     Active Substance: NAPROXEN
     Indication: Endometriosis
  7. NAPROSYN [Suspect]
     Active Substance: NAPROXEN
     Indication: Irritable bowel syndrome
  8. NAPROSYN [Suspect]
     Active Substance: NAPROXEN
     Indication: Arthralgia
  9. NAPROSYN [Suspect]
     Active Substance: NAPROXEN
     Indication: Spinal osteoarthritis
  10. NAPROSYN [Suspect]
     Active Substance: NAPROXEN
     Indication: Hyperparathyroidism
  11. NAPROSYN [Suspect]
     Active Substance: NAPROXEN
     Indication: Hernia
  12. TRAMADOL [Suspect]
     Active Substance: TRAMADOL
     Indication: Hypermobility syndrome
  13. TRAMADOL [Suspect]
     Active Substance: TRAMADOL
     Indication: Fibromyalgia
  14. TRAMADOL [Suspect]
     Active Substance: TRAMADOL
     Indication: Intervertebral disc degeneration
  15. TRAMADOL [Suspect]
     Active Substance: TRAMADOL
     Indication: Neuropathy peripheral
  16. TRAMADOL [Suspect]
     Active Substance: TRAMADOL
     Indication: Hemiplegic migraine
  17. TRAMADOL [Suspect]
     Active Substance: TRAMADOL
     Indication: Endometriosis
  18. TRAMADOL [Suspect]
     Active Substance: TRAMADOL
     Indication: Irritable bowel syndrome
  19. TRAMADOL [Suspect]
     Active Substance: TRAMADOL
     Indication: Arthralgia
  20. TRAMADOL [Suspect]
     Active Substance: TRAMADOL
     Indication: Spinal osteoarthritis
  21. TRAMADOL [Suspect]
     Active Substance: TRAMADOL
     Indication: Hyperparathyroidism
  22. TRAMADOL [Suspect]
     Active Substance: TRAMADOL
     Indication: Hernia
  23. DULOXETINE [Suspect]
     Active Substance: DULOXETINE
     Indication: Hypermobility syndrome
     Route: 065
  24. DULOXETINE [Suspect]
     Active Substance: DULOXETINE
     Indication: Fibromyalgia
  25. DULOXETINE [Suspect]
     Active Substance: DULOXETINE
     Indication: Intervertebral disc degeneration
  26. DULOXETINE [Suspect]
     Active Substance: DULOXETINE
     Indication: Neuropathy peripheral
  27. DULOXETINE [Suspect]
     Active Substance: DULOXETINE
     Indication: Hemiplegic migraine
  28. DULOXETINE [Suspect]
     Active Substance: DULOXETINE
     Indication: Endometriosis
  29. DULOXETINE [Suspect]
     Active Substance: DULOXETINE
     Indication: Irritable bowel syndrome
  30. DULOXETINE [Suspect]
     Active Substance: DULOXETINE
     Indication: Arthralgia
  31. DULOXETINE [Suspect]
     Active Substance: DULOXETINE
     Indication: Spinal osteoarthritis
  32. DULOXETINE [Suspect]
     Active Substance: DULOXETINE
     Indication: Hyperparathyroidism
  33. DULOXETINE [Suspect]
     Active Substance: DULOXETINE
     Indication: Hernia
  34. PREGABALIN [Suspect]
     Active Substance: PREGABALIN
     Indication: Hypermobility syndrome
     Route: 065
  35. PREGABALIN [Suspect]
     Active Substance: PREGABALIN
     Indication: Fibromyalgia
  36. PREGABALIN [Suspect]
     Active Substance: PREGABALIN
     Indication: Intervertebral disc degeneration
  37. PREGABALIN [Suspect]
     Active Substance: PREGABALIN
     Indication: Neuropathy peripheral
  38. PREGABALIN [Suspect]
     Active Substance: PREGABALIN
     Indication: Hemiplegic migraine
  39. PREGABALIN [Suspect]
     Active Substance: PREGABALIN
     Indication: Endometriosis
  40. PREGABALIN [Suspect]
     Active Substance: PREGABALIN
     Indication: Irritable bowel syndrome
  41. PREGABALIN [Suspect]
     Active Substance: PREGABALIN
     Indication: Arthralgia
  42. PREGABALIN [Suspect]
     Active Substance: PREGABALIN
     Indication: Spinal osteoarthritis
  43. PREGABALIN [Suspect]
     Active Substance: PREGABALIN
     Indication: Hyperparathyroidism
  44. PREGABALIN [Suspect]
     Active Substance: PREGABALIN
     Indication: Hernia
  45. TRAMADOL HYDROCHLORIDE [Suspect]
     Active Substance: TRAMADOL HYDROCHLORIDE
     Indication: Hypermobility syndrome
     Route: 065
  46. TRAMADOL HYDROCHLORIDE [Suspect]
     Active Substance: TRAMADOL HYDROCHLORIDE
     Indication: Fibromyalgia
  47. TRAMADOL HYDROCHLORIDE [Suspect]
     Active Substance: TRAMADOL HYDROCHLORIDE
     Indication: Intervertebral disc degeneration
  48. TRAMADOL HYDROCHLORIDE [Suspect]
     Active Substance: TRAMADOL HYDROCHLORIDE
     Indication: Neuropathy peripheral
  49. TRAMADOL HYDROCHLORIDE [Suspect]
     Active Substance: TRAMADOL HYDROCHLORIDE
     Indication: Hemiplegic migraine
  50. TRAMADOL HYDROCHLORIDE [Suspect]
     Active Substance: TRAMADOL HYDROCHLORIDE
     Indication: Endometriosis
  51. TRAMADOL HYDROCHLORIDE [Suspect]
     Active Substance: TRAMADOL HYDROCHLORIDE
     Indication: Irritable bowel syndrome
  52. TRAMADOL HYDROCHLORIDE [Suspect]
     Active Substance: TRAMADOL HYDROCHLORIDE
     Indication: Arthralgia
  53. TRAMADOL HYDROCHLORIDE [Suspect]
     Active Substance: TRAMADOL HYDROCHLORIDE
     Indication: Spinal osteoarthritis
  54. TRAMADOL HYDROCHLORIDE [Suspect]
     Active Substance: TRAMADOL HYDROCHLORIDE
     Indication: Hyperparathyroidism
  55. TRAMADOL HYDROCHLORIDE [Suspect]
     Active Substance: TRAMADOL HYDROCHLORIDE
     Indication: Hernia
  56. COCODAMOL [Suspect]
     Active Substance: ACETAMINOPHEN\CODEINE PHOSPHATE
     Indication: Hypermobility syndrome
     Route: 065
  57. COCODAMOL [Suspect]
     Active Substance: ACETAMINOPHEN\CODEINE PHOSPHATE
     Indication: Fibromyalgia
  58. COCODAMOL [Suspect]
     Active Substance: ACETAMINOPHEN\CODEINE PHOSPHATE
     Indication: Intervertebral disc degeneration
  59. COCODAMOL [Suspect]
     Active Substance: ACETAMINOPHEN\CODEINE PHOSPHATE
     Indication: Neuropathy peripheral
  60. COCODAMOL [Suspect]
     Active Substance: ACETAMINOPHEN\CODEINE PHOSPHATE
     Indication: Hemiplegic migraine
  61. COCODAMOL [Suspect]
     Active Substance: ACETAMINOPHEN\CODEINE PHOSPHATE
     Indication: Endometriosis
  62. COCODAMOL [Suspect]
     Active Substance: ACETAMINOPHEN\CODEINE PHOSPHATE
     Indication: Irritable bowel syndrome
  63. COCODAMOL [Suspect]
     Active Substance: ACETAMINOPHEN\CODEINE PHOSPHATE
     Indication: Arthralgia
  64. COCODAMOL [Suspect]
     Active Substance: ACETAMINOPHEN\CODEINE PHOSPHATE
     Indication: Spinal osteoarthritis
  65. COCODAMOL [Suspect]
     Active Substance: ACETAMINOPHEN\CODEINE PHOSPHATE
     Indication: Hyperparathyroidism
  66. COCODAMOL [Suspect]
     Active Substance: ACETAMINOPHEN\CODEINE PHOSPHATE
     Indication: Hernia
  67. BUTYLSCOPOLAMINE BROMIDE [Suspect]
     Active Substance: BUTYLSCOPOLAMINE BROMIDE
     Indication: Irritable bowel syndrome
     Route: 065
  68. ASPIRIN [Suspect]
     Active Substance: ASPIRIN
     Indication: Hypermobility syndrome
     Route: 065
  69. ASPIRIN [Suspect]
     Active Substance: ASPIRIN
     Indication: Fibromyalgia
  70. ASPIRIN [Suspect]
     Active Substance: ASPIRIN
     Indication: Intervertebral disc degeneration
  71. ASPIRIN [Suspect]
     Active Substance: ASPIRIN
     Indication: Neuropathy peripheral
  72. ASPIRIN [Suspect]
     Active Substance: ASPIRIN
     Indication: Hemiplegic migraine
  73. ASPIRIN [Suspect]
     Active Substance: ASPIRIN
     Indication: Endometriosis
  74. ASPIRIN [Suspect]
     Active Substance: ASPIRIN
     Indication: Irritable bowel syndrome
  75. ASPIRIN [Suspect]
     Active Substance: ASPIRIN
     Indication: Arthralgia
  76. ASPIRIN [Suspect]
     Active Substance: ASPIRIN
     Indication: Spinal osteoarthritis
  77. ASPIRIN [Suspect]
     Active Substance: ASPIRIN
     Indication: Hyperparathyroidism
  78. ASPIRIN [Suspect]
     Active Substance: ASPIRIN
     Indication: Hernia
  79. SENNA LEAF [Suspect]
     Active Substance: SENNA LEAF
     Indication: Irritable bowel syndrome
     Route: 065

REACTIONS (8)
  - Traumatic lung injury [Unknown]
  - Pneumonia [Unknown]
  - Asthma [Unknown]
  - Post-traumatic stress disorder [Unknown]
  - Constipation [Unknown]
  - Rash [Unknown]
  - Diarrhoea [Unknown]
  - Irritable bowel syndrome [Unknown]
